FAERS Safety Report 20520114 (Version 1)
Quarter: 2022Q1

REPORT INFORMATION
  Report Type: Spontaneous
  Country: US (occurrence: US)
  Receive Date: 20220225
  Receipt Date: 20220225
  Transmission Date: 20220423
  Serious: Yes (Other)
  Sender: FDA-Public Use
  Company Number: US-MEDEXUS PHARMA, INC.-2022MED00083

PATIENT
  Age: 31 Day
  Sex: Male

DRUGS (2)
  1. METHOTREXATE [Suspect]
     Active Substance: METHOTREXATE
     Indication: Glycogen storage disease type II
     Route: 065
  2. ALGLUCOSIDASE-ALPHA ENZYME REPLACEMENT THERAPY [Concomitant]
     Indication: Glycogen storage disease type II
     Dosage: BIWEEKLY
     Route: 065

REACTIONS (3)
  - Left ventricular dilatation [Unknown]
  - Anaemia [Not Recovered/Not Resolved]
  - Product use issue [Not Recovered/Not Resolved]
